FAERS Safety Report 7336384 (Version 6)
Quarter: 2014Q2

REPORT INFORMATION
  Report Type: Report from Study
  Country: BR (occurrence: BR)
  Receive Date: 20100330
  Receipt Date: 20140530
  Transmission Date: 20141212
  Serious: Yes (Other)
  Sender: FDA-Public Use
  Company Number: BR-ROCHE-693125

PATIENT
  Age: 53 Year
  Sex: Female
  Weight: 65 kg

DRUGS (13)
  1. ACTEMRA [Suspect]
     Indication: RHEUMATOID ARTHRITIS
     Dosage: FORM: INFUSION.
     Route: 065
     Dates: start: 20100118, end: 20100118
  2. ACTEMRA [Suspect]
     Route: 065
     Dates: start: 20100212, end: 20100212
  3. ACTEMRA [Suspect]
     Route: 065
     Dates: start: 20100312, end: 20100312
  4. ACTEMRA [Suspect]
     Route: 065
     Dates: start: 20100412, end: 20100412
  5. ACTEMRA [Suspect]
     Route: 065
     Dates: start: 20100712, end: 20100712
  6. ACTEMRA [Suspect]
     Route: 065
     Dates: start: 20100812, end: 20100812
  7. ACTEMRA [Suspect]
     Route: 042
     Dates: start: 20130806, end: 20130816
  8. MABTHERA [Suspect]
     Indication: RHEUMATOID ARTHRITIS
     Route: 042
     Dates: start: 20140415
  9. RETEMIC [Concomitant]
     Indication: URINARY INCONTINENCE
     Route: 065
  10. EUTHYROX [Concomitant]
     Indication: THYROID DISORDER
     Dosage: RECEIVED FOR A LONG TIME
     Route: 065
  11. METHOTREXATE [Concomitant]
     Route: 065
  12. OXYBUTYNIN [Concomitant]
  13. FOLIC ACID [Concomitant]

REACTIONS (10)
  - Hallucination [Recovered/Resolved]
  - Headache [Unknown]
  - Pain [Recovered/Resolved]
  - Fatigue [Recovered/Resolved]
  - Arthralgia [Not Recovered/Not Resolved]
  - Blood test abnormal [Unknown]
  - Urinary tract inflammation [Unknown]
  - Erythema [Unknown]
  - Blood pressure increased [Unknown]
  - Nausea [Unknown]
